FAERS Safety Report 25249531 (Version 2)
Quarter: 2025Q3

REPORT INFORMATION
  Report Type: Report from Study
  Country: JP (occurrence: JP)
  Receive Date: 20250429
  Receipt Date: 20250710
  Transmission Date: 20251021
  Serious: Yes (Other)
  Sender: UCB
  Company Number: JP-UCBJ-CD202505623UCBPHAPROD

PATIENT
  Age: 6 Year
  Sex: Female
  Weight: 20 kg

DRUGS (13)
  1. FENFLURAMINE HYDROCHLORIDE [Suspect]
     Active Substance: FENFLURAMINE HYDROCHLORIDE
     Indication: Severe myoclonic epilepsy of infancy
     Dosage: 0.1 MILLIGRAM/KILOGRAM, 2X/DAY (BID)
     Route: 048
     Dates: start: 20240418
  2. FENFLURAMINE HYDROCHLORIDE [Suspect]
     Active Substance: FENFLURAMINE HYDROCHLORIDE
     Dosage: 0.15 MILLIGRAM/KILOGRAM, 2X/DAY (BID)
     Route: 048
     Dates: start: 20240425
  3. FENFLURAMINE HYDROCHLORIDE [Suspect]
     Active Substance: FENFLURAMINE HYDROCHLORIDE
     Dosage: 0.2 MILLIGRAM/KILOGRAM, 2X/DAY (BID)
     Route: 048
     Dates: start: 20240502
  4. MYSTAN [Concomitant]
     Active Substance: CLOBAZAM
     Indication: Severe myoclonic epilepsy of infancy
     Route: 048
     Dates: start: 202410
  5. MYSTAN [Concomitant]
     Active Substance: CLOBAZAM
     Route: 048
     Dates: start: 20241121
  6. MYSTAN [Concomitant]
     Active Substance: CLOBAZAM
     Route: 048
     Dates: start: 20250123
  7. MYSTAN [Concomitant]
     Active Substance: CLOBAZAM
     Route: 048
     Dates: start: 20250213
  8. DIACOMIT [Concomitant]
     Active Substance: STIRIPENTOL
     Indication: Severe myoclonic epilepsy of infancy
     Dosage: 500 MILLIGRAM, ONCE DAILY (QD)
     Route: 048
  9. VALPROATE SODIUM [Concomitant]
     Active Substance: VALPROATE SODIUM
     Indication: Severe myoclonic epilepsy of infancy
     Dosage: 12 MILLILITER, ONCE DAILY (QD)
     Route: 048
  10. FYCOMPA [Concomitant]
     Active Substance: PERAMPANEL
     Indication: Severe myoclonic epilepsy of infancy
     Dosage: 3 MILLIGRAM, ONCE DAILY (QD)
     Route: 048
  11. LEVOCARNITINE [Concomitant]
     Active Substance: LEVOCARNITINE
     Indication: Prophylaxis
     Dosage: 2 MILLILITER, ONCE DAILY (QD)
     Route: 048
  12. RAMELTEON [Concomitant]
     Active Substance: RAMELTEON
     Indication: Product used for unknown indication
     Dosage: 2 MILLILITER, ONCE DAILY (QD)
     Route: 048
  13. DIAZEPAM [Concomitant]
     Active Substance: DIAZEPAM
     Indication: Severe myoclonic epilepsy of infancy
     Dosage: 10 MILLIGRAM, ONCE DAILY (QD)
     Route: 054

REACTIONS (1)
  - Epilepsy [Recovered/Resolved]

NARRATIVE: CASE EVENT DATE: 20241201
